FAERS Safety Report 7666830-8 (Version None)
Quarter: 2011Q3

REPORT INFORMATION
  Report Type: 
  Country: None (occurrence: None)
  Receive Date: 20110806
  Receipt Date: 20110718
  Transmission Date: 20111222
  Serious: No
  Sender: FDA-Public Use
  Company Number: US-ABBOTT-11P-163-0839853-00

PATIENT
  Sex: Male
  Weight: 106.24 kg

DRUGS (6)
  1. NIASPAN [Suspect]
     Indication: BLOOD CHOLESTEROL INCREASED
     Dosage: DURING THE 1ST WEEK
     Route: 048
     Dates: start: 20110601
  2. VIT B12 [Concomitant]
     Indication: PRODUCT USED FOR UNKNOWN INDICATION
  3. VIT D3 [Concomitant]
     Indication: PRODUCT USED FOR UNKNOWN INDICATION
  4. ASPIRIN [Concomitant]
     Indication: PRODUCT USED FOR UNKNOWN INDICATION
  5. NIASPAN [Suspect]
     Dosage: DURING THE 2ND WEEK
     Route: 048
  6. NIASPAN [Suspect]
     Dosage: DURING THE 3RD WEEK
     Route: 048

REACTIONS (1)
  - FLUSHING [None]
